FAERS Safety Report 15435170 (Version 2)
Quarter: 2018Q4

REPORT INFORMATION
  Report Type: Report from Study
  Country: ZA (occurrence: ZA)
  Receive Date: 20180927
  Receipt Date: 20181009
  Transmission Date: 20190204
  Serious: Yes (Hospitalization)
  Sender: FDA-Public Use
  Company Number: ZA-SA-2018SA115807

PATIENT
  Age: 64 Year
  Sex: Female

DRUGS (3)
  1. INSULIN GLULISINE [Suspect]
     Active Substance: INSULIN GLULISINE
     Dosage: 50 IU,QD
     Route: 065
     Dates: start: 20180411
  2. OPTISULIN (INSULIN GLARGINE) [Suspect]
     Active Substance: INSULIN GLARGINE
     Indication: TYPE 2 DIABETES MELLITUS
     Dosage: 34 U, QD
     Dates: start: 20180411
  3. INSULIN GLULISINE [Suspect]
     Active Substance: INSULIN GLULISINE
     Indication: TYPE 2 DIABETES MELLITUS
     Dosage: 16 IU, TID
     Dates: start: 20180413

REACTIONS (5)
  - Hospitalisation [Unknown]
  - Localised infection [Unknown]
  - Blood glucose abnormal [Unknown]
  - Pain [Unknown]
  - Insomnia [Unknown]
